FAERS Safety Report 22052103 (Version 1)
Quarter: 2023Q1

REPORT INFORMATION
  Report Type: Spontaneous
  Country: FR (occurrence: FR)
  Receive Date: 20230302
  Receipt Date: 20230302
  Transmission Date: 20230417
  Serious: Yes (Hospitalization, Other)
  Sender: FDA-Public Use
  Company Number: FR-AFSSAPS-LL2023000255

PATIENT
  Age: 14 Year
  Sex: Female

DRUGS (1)
  1. CEFIXIME [Suspect]
     Active Substance: CEFIXIME
     Indication: Tonsillitis
     Dosage: 400 MILLIGRAM (200MG 2/J)
     Route: 065
     Dates: start: 20230117, end: 20230120

REACTIONS (1)
  - Autoimmune haemolytic anaemia [Not Recovered/Not Resolved]

NARRATIVE: CASE EVENT DATE: 20230121
